FAERS Safety Report 9331300 (Version 1)
Quarter: 2013Q2

REPORT INFORMATION
  Report Type: Spontaneous
  Country: DE (occurrence: DE)
  Receive Date: 20130605
  Receipt Date: 20130605
  Transmission Date: 20140414
  Serious: Yes (Other)
  Sender: FDA-Public Use
  Company Number: DE-PFIZER INC-2013167921

PATIENT
  Age: 82 Year
  Sex: Female

DRUGS (2)
  1. LYRICA [Suspect]
     Dosage: 25 MG, 1X/DAY
  2. MARCUMAR [Concomitant]
     Dosage: UNK

REACTIONS (3)
  - Complex regional pain syndrome [Unknown]
  - Syncope [Unknown]
  - Anxiety [Unknown]
